FAERS Safety Report 9481829 (Version 1)
Quarter: 2013Q3

REPORT INFORMATION
  Report Type: Spontaneous
  Country: CA (occurrence: CA)
  Receive Date: 20130828
  Receipt Date: 20130828
  Transmission Date: 20140515
  Serious: Yes (Hospitalization, Other)
  Sender: FDA-Public Use
  Company Number: CA-AMGEN-KDL235750

PATIENT
  Age: 60 Year
  Sex: Female

DRUGS (3)
  1. ENBREL [Suspect]
     Indication: RHEUMATOID ARTHRITIS
     Dosage: 25 MG, 2 TIMES/WK
     Route: 058
     Dates: start: 20010912
  2. ACETYLSALICYLIC ACID [Concomitant]
     Dosage: 10 MG, QD
     Route: 048
  3. UNSPECIFIED MEDICATION [Concomitant]

REACTIONS (3)
  - Myocardial infarction [Unknown]
  - Lung infection [Unknown]
  - Injection site bruising [Not Recovered/Not Resolved]
